FAERS Safety Report 16007220 (Version 9)
Quarter: 2020Q1

REPORT INFORMATION
  Report Type: Report from Study
  Country: AU (occurrence: AU)
  Receive Date: 20190226
  Receipt Date: 20200131
  Transmission Date: 20200409
  Serious: Yes (Death, Hospitalization)
  Sender: FDA-Public Use
  Company Number: AU-ACTELION-A-CH2018-169157

PATIENT
  Age: 51 Year
  Sex: Female
  Weight: 60 kg

DRUGS (16)
  1. FRUSEMIDE [Concomitant]
     Active Substance: FUROSEMIDE
     Indication: OEDEMA
     Dosage: 40 MG, BID
     Route: 048
     Dates: start: 20160429
  2. VENTAVIS [Suspect]
     Active Substance: ILOPROST
     Indication: PULMONARY ARTERIAL HYPERTENSION
     Dosage: 2.5 MG 6 TIMES A DAY
     Route: 055
     Dates: start: 20161026, end: 2019
  3. SEREPAX [Concomitant]
     Active Substance: OXAZEPAM
     Dosage: 30 MG
     Route: 048
  4. SPIRONOLACTONE. [Concomitant]
     Active Substance: SPIRONOLACTONE
     Indication: PULMONARY ARTERIAL HYPERTENSION
     Dosage: 25 MG, OD
     Route: 048
     Dates: start: 20150915
  5. APIXABAN [Concomitant]
     Active Substance: APIXABAN
     Indication: PULMONARY ARTERIAL HYPERTENSION
     Dosage: 2.5 MG, OD
     Route: 048
  6. PROMETHAZINE [Concomitant]
     Active Substance: PROMETHAZINE HYDROCHLORIDE
  7. TADALAFIL LAM [Suspect]
     Active Substance: TADALAFIL
     Indication: PULMONARY ARTERIAL HYPERTENSION
     Dosage: 40 MG, QD
     Route: 048
  8. DILAUDID [Suspect]
     Active Substance: HYDROMORPHONE HYDROCHLORIDE
     Indication: PRODUCT USED FOR UNKNOWN INDICATION
     Dosage: 8 MG
     Route: 048
  9. CANNABIS [Concomitant]
     Active Substance: CANNABIS SATIVA SUBSP. INDICA TOP
  10. OXAZEPAM. [Concomitant]
     Active Substance: OXAZEPAM
  11. SILDENAFIL. [Suspect]
     Active Substance: SILDENAFIL
     Dosage: 75 MG, TID
     Route: 048
     Dates: start: 20150920, end: 2019
  12. OPSUMIT [Suspect]
     Active Substance: MACITENTAN
     Indication: PULMONARY ARTERIAL HYPERTENSION
     Dosage: 10 MG, OD
     Route: 048
     Dates: start: 20150930
  13. SILDENAFIL. [Suspect]
     Active Substance: SILDENAFIL
     Indication: PULMONARY ARTERIAL HYPERTENSION
     Dosage: 50 MG, TID
     Route: 048
     Dates: start: 20150930
  14. OXYGEN. [Concomitant]
     Active Substance: OXYGEN
     Indication: PULMONARY ARTERIAL HYPERTENSION
     Dosage: CONTINUOUS
  15. PHENERGAN [Concomitant]
     Active Substance: PROMETHAZINE HYDROCHLORIDE
     Dosage: 25 MG
     Route: 048
  16. HYDROMORPHONE [Concomitant]
     Active Substance: HYDROMORPHONE
     Dosage: 24 MG, QID

REACTIONS (14)
  - Peripheral swelling [Not Recovered/Not Resolved]
  - Treatment noncompliance [Unknown]
  - Foot fracture [Unknown]
  - Erythema [Unknown]
  - Bedridden [Unknown]
  - Device related infection [Recovered/Resolved]
  - Deep vein thrombosis [Unknown]
  - Cardiac failure [Fatal]
  - Vascular device infection [Unknown]
  - Gait disturbance [Not Recovered/Not Resolved]
  - Dyspnoea [Recovered/Resolved]
  - Dysphagia [Unknown]
  - Malaise [Unknown]
  - Pain [Unknown]

NARRATIVE: CASE EVENT DATE: 20180305
